FAERS Safety Report 8205089-X (Version None)
Quarter: 2012Q1

REPORT INFORMATION
  Report Type: 
  Country: None (occurrence: None)
  Receive Date: 20120313
  Receipt Date: 20120308
  Transmission Date: 20120608
  Serious: Yes (Other)
  Sender: FDA-Public Use
  Company Number: BR-ABBOTT-12P-020-0913570-00

PATIENT
  Sex: Female
  Weight: 70 kg

DRUGS (5)
  1. INDAPAMIDE [Concomitant]
     Indication: BLOOD PRESSURE ABNORMAL
     Dates: start: 20090101
  2. SYNTHROID [Suspect]
     Indication: HYPOTHYROIDISM
     Route: 048
     Dates: start: 20050101
  3. SYNTHROID [Suspect]
     Route: 048
  4. ENALAPRIL [Concomitant]
     Indication: HYPERTENSION
     Route: 048
     Dates: start: 20020101
  5. SYNTHROID [Suspect]
     Route: 048

REACTIONS (4)
  - VOCAL CORD PARESIS [None]
  - WEIGHT INCREASED [None]
  - THYROID NEOPLASM [None]
  - DYSPHONIA [None]
